FAERS Safety Report 16025433 (Version 1)
Quarter: 2019Q1

REPORT INFORMATION
  Report Type: Report from Study
  Country: US (occurrence: US)
  Receive Date: 20190301
  Receipt Date: 20190301
  Transmission Date: 20190418
  Serious: Yes (Hospitalization)
  Sender: FDA-Public Use
  Company Number: US-ACTELION-A-NJ2017-155423

PATIENT
  Age: 40 Year
  Sex: Male
  Weight: 59.86 kg

DRUGS (3)
  1. ADEMPAS [Concomitant]
     Active Substance: RIOCIGUAT
  2. XARELTO [Concomitant]
     Active Substance: RIVAROXABAN
  3. TRACLEER [Suspect]
     Active Substance: BOSENTAN
     Indication: PULMONARY ARTERIAL HYPERTENSION
     Dosage: 125 MG, BID
     Route: 048

REACTIONS (11)
  - Oxygen saturation decreased [Unknown]
  - Syncope [Unknown]
  - Chest pain [Unknown]
  - Oedema [Unknown]
  - Dizziness [Unknown]
  - Fatigue [Unknown]
  - Blood pressure systolic decreased [Unknown]
  - Hospitalisation [Unknown]
  - Dyspnoea [Unknown]
  - Dyspnoea exertional [Recovering/Resolving]
  - Emergency care [Unknown]

NARRATIVE: CASE EVENT DATE: 20190204
